FAERS Safety Report 4800400-1 (Version None)
Quarter: 2005Q4

REPORT INFORMATION
  Report Type: 
  Country: None (occurrence: None)
  Receive Date: 20051013
  Receipt Date: 20050927
  Transmission Date: 20060501
  Serious: Yes (Hospitalization)
  Sender: FDA-Public Use
  Company Number: 310002M05ITA

PATIENT
  Age: 37 Year
  Sex: Female

DRUGS (3)
  1. GONAL-F [Suspect]
     Indication: ASSISTED FERTILISATION
     Dosage: SEE IMAGE
     Route: 058
     Dates: start: 20050303, end: 20050312
  2. GONAL-F [Suspect]
     Indication: ASSISTED FERTILISATION
     Dosage: SEE IMAGE
     Route: 058
     Dates: start: 20050615, end: 20050624
  3. DECAPEPTYL (GONADORELIN) [Concomitant]

REACTIONS (4)
  - ARTHRITIS [None]
  - BURSITIS [None]
  - PERIARTHRITIS [None]
  - TENOSYNOVITIS [None]
